FAERS Safety Report 9855096 (Version 1)
Quarter: 2013Q4

REPORT INFORMATION
  Report Type: Spontaneous
  Country: US (occurrence: None)
  Receive Date: 20131226
  Receipt Date: 20131226
  Transmission Date: 20140711
  Serious: Yes (Other)
  Sender: FDA-Public Use
  Company Number: PHEH2012US007426

PATIENT
  Sex: 0

DRUGS (1)
  1. AFINITOR (RAD) UNKNOWN [Suspect]
     Route: 048

REACTIONS (4)
  - Anaphylactic reaction [None]
  - Dyspnoea [None]
  - Dysphagia [None]
  - Swelling [None]
